FAERS Safety Report 23068279 (Version 1)
Quarter: 2023Q4

REPORT INFORMATION
  Report Type: Report from Study
  Country: CZ (occurrence: CZ)
  Receive Date: 20231016
  Receipt Date: 20231016
  Transmission Date: 20240110
  Serious: Yes (Hospitalization)
  Sender: FDA-Public Use
  Company Number: CZ-CELLTRION INC.-2023CZ019752

PATIENT

DRUGS (1)
  1. ADALIMUMAB-AATY [Suspect]
     Active Substance: ADALIMUMAB-AATY
     Indication: Product used for unknown indication
     Dosage: UNK
     Dates: end: 20230828

REACTIONS (6)
  - Abdominal pain lower [Recovering/Resolving]
  - Oropharyngeal pain [Recovering/Resolving]
  - Diarrhoea [Recovering/Resolving]
  - Pyrexia [Recovering/Resolving]
  - Asthenia [Recovering/Resolving]
  - Infection [Recovering/Resolving]

NARRATIVE: CASE EVENT DATE: 20230918
